FAERS Safety Report 7909703-5 (Version None)
Quarter: 2011Q4

REPORT INFORMATION
  Report Type: 
  Country: None (occurrence: None)
  Receive Date: 20111111
  Receipt Date: 20111108
  Transmission Date: 20120403
  Serious: Yes (Other)
  Sender: FDA-Public Use
  Company Number: DE-GLAXOSMITHKLINE-D0073325A

PATIENT
  Sex: Male

DRUGS (1)
  1. TROBALT [Suspect]
     Route: 065

REACTIONS (2)
  - HALLUCINATION, VISUAL [None]
  - ANXIETY [None]
